FAERS Safety Report 8972023 (Version 1)
Quarter: 2012Q4

REPORT INFORMATION
  Report Type: 
  Country: JP (occurrence: JP)
  Receive Date: 20121219
  Receipt Date: 20121219
  Transmission Date: 20130627
  Serious: Yes (Death, Life-Threatening)
  Sender: FDA-Public Use
  Company Number: JP-009507513-2006SP008895

PATIENT
  Age: 83 Year
  Sex: Male
  Weight: 41 kg

DRUGS (12)
  1. TEMODAR [Suspect]
     Indication: GLIOBLASTOMA MULTIFORME
     Dosage: 150 mg/m2, qd
     Route: 048
     Dates: start: 20060920, end: 20060924
  2. PREDONINE [Concomitant]
     Dosage: daily dosage unknow, start date before 20-SEP-2006
     Route: 048
     Dates: end: 20061025
  3. GASTER [Concomitant]
     Dosage: daily dosage unknow, start date before 20-SEP-2006
     Route: 048
     Dates: end: 20061025
  4. MUCOSTA [Concomitant]
     Dosage: daily dosage unknow, start date before 20-SEP-2006
     Route: 048
     Dates: end: 20061025
  5. PENTCILLIN [Concomitant]
     Dosage: UNK
     Route: 042
     Dates: start: 20061020, end: 20061024
  6. PENTCILLIN [Concomitant]
     Dosage: UNK
     Route: 042
     Dates: start: 20061027, end: 20061030
  7. PANSPORIN [Concomitant]
     Route: 042
     Dates: start: 20061031, end: 20061102
  8. SULPERAZON (CEFOPERAZONE SODIUM (+) SULBACTAM SODIUM) [Concomitant]
     Route: 042
     Dates: start: 20061102, end: 20061110
  9. SIVELESTAT SODIUM [Concomitant]
     Route: 042
     Dates: start: 20061102, end: 20061111
  10. OMEPRAL [Concomitant]
     Dosage: daily dosage unknown
     Route: 042
     Dates: start: 20061103, end: 20061111
  11. CEFOZOPRAN HYDROCHLORIDE [Concomitant]
     Route: 042
     Dates: start: 20061113, end: 20061115
  12. UNSPECIFIED INGREDIENT [Suspect]
     Dosage: daily dose unknown, drip
     Route: 042
     Dates: start: 20061011, end: 20061102

REACTIONS (7)
  - Lymphocyte count decreased [Fatal]
  - Pneumonia [Fatal]
  - Eating disorder [Fatal]
  - Circulatory collapse [Fatal]
  - Fungaemia [Recovering/Resolving]
  - Cystitis [Recovered/Resolved]
  - Hepatic function abnormal [Unknown]
